FAERS Safety Report 18330251 (Version 2)
Quarter: 2020Q3

REPORT INFORMATION
  Report Type: Spontaneous
  Country: US (occurrence: US)
  Receive Date: 20200930
  Receipt Date: 20200930
  Transmission Date: 20201103
  Serious: No
  Sender: FDA-Public Use
  Company Number: US-PFIZER INC-2019256654

PATIENT
  Age: 76 Year
  Sex: Female

DRUGS (3)
  1. LYRICA [Suspect]
     Active Substance: PREGABALIN
     Dosage: 600 MG, DAILY (4 CAPSULES DAILY)
  2. LYRICA [Suspect]
     Active Substance: PREGABALIN
     Dosage: 2 DF, DAILY (SUPPOSED TO TAKE 4 PILLS A DAY BUT HAS CUT DOWN TO 2 PILLS A DAY)
  3. LYRICA [Suspect]
     Active Substance: PREGABALIN
     Indication: OSTEOARTHRITIS
     Dosage: 150 MG, 4X/DAY
     Route: 048

REACTIONS (4)
  - Intentional product misuse [Unknown]
  - Product use in unapproved indication [Unknown]
  - Hypertension [Unknown]
  - Off label use [Unknown]
